FAERS Safety Report 7247643-8 (Version None)
Quarter: 2011Q1

REPORT INFORMATION
  Report Type: 
  Country: None (occurrence: None)
  Receive Date: 20110127
  Receipt Date: 20110107
  Transmission Date: 20110831
  Serious: Yes (Hospitalization)
  Sender: FDA-Public Use
  Company Number: US-JNJFOC-20110106398

PATIENT
  Sex: Male
  Weight: 30.8 kg

DRUGS (11)
  1. ZINC SULFATE [Concomitant]
  2. OMEPRAZOLE [Concomitant]
  3. REMICADE [Suspect]
     Indication: CROHN'S DISEASE
     Route: 042
  4. FLAGYL [Concomitant]
  5. SULFASALAZINE [Concomitant]
  6. FOLATE [Concomitant]
  7. REMICADE [Suspect]
     Route: 042
  8. IMURAN [Suspect]
     Indication: CROHN'S DISEASE
  9. IRON [Concomitant]
  10. MULTI-VITAMINS [Concomitant]
  11. PREDNISOLONE [Concomitant]

REACTIONS (1)
  - VARICELLA [None]
